FAERS Safety Report 8078391-2 (Version None)
Quarter: 2012Q1

REPORT INFORMATION
  Report Type: 
  Country: None (occurrence: None)
  Receive Date: 20120123
  Receipt Date: 20110831
  Transmission Date: 20120608
  Serious: No
  Sender: FDA-Public Use
  Company Number: 2011IP000159

PATIENT
  Age: 47 Year
  Sex: Female

DRUGS (1)
  1. VITRASE [Suspect]
     Indication: INJECTION SITE NODULE
     Dosage: ;1X;SC
     Route: 058
     Dates: start: 20110726, end: 20110726

REACTIONS (3)
  - INSOMNIA [None]
  - PAIN OF SKIN [None]
  - HEADACHE [None]
